FAERS Safety Report 8958216 (Version 1)
Quarter: 2012Q4

REPORT INFORMATION
  Report Type: 
  Country: GR (occurrence: GR)
  Receive Date: 20121211
  Receipt Date: 20121211
  Transmission Date: 20130627
  Serious: Yes (Death, Other)
  Sender: FDA-Public Use
  Company Number: PHHY2012GR112581

PATIENT
  Age: 46 Year
  Sex: Male

DRUGS (3)
  1. EVEROLIMUS [Suspect]
     Indication: LIVER TRANSPLANT
     Dosage: 2 mg, BID
  2. MYFORTIC [Concomitant]
     Dosage: 720 mg, BID
  3. PREZOLON [Concomitant]

REACTIONS (12)
  - Sepsis [Fatal]
  - Hepatic lesion [Unknown]
  - Pneumothorax [Unknown]
  - Laceration [Not Recovered/Not Resolved]
  - Colon cancer stage III [Unknown]
  - Anuria [Unknown]
  - Renal impairment [Recovering/Resolving]
  - Plasma cell myeloma [Unknown]
  - Alpha 1 foetoprotein increased [Unknown]
  - Hepatic cancer metastatic [Unknown]
  - Urinary tract infection [Not Recovered/Not Resolved]
  - Infection [Not Recovered/Not Resolved]
